FAERS Safety Report 19449802 (Version 1)
Quarter: 2021Q2

REPORT INFORMATION
  Report Type: Spontaneous
  Country: TR (occurrence: TR)
  Receive Date: 20210622
  Receipt Date: 20210622
  Transmission Date: 20210717
  Serious: Yes (Life-Threatening, Hospitalization, Other)
  Sender: FDA-Public Use
  Company Number: TR-LUPIN PHARMACEUTICALS INC.-2021-09929

PATIENT
  Age: 4 Year
  Sex: Female
  Weight: 20 kg

DRUGS (4)
  1. PEDITUS [Suspect]
     Active Substance: ACETAMINOPHEN\GUAIFENESIN\PHENYLEPHRINE HYDROCHLORIDE\PYRILAMINE MALEATE
     Indication: PRODUCT USED FOR UNKNOWN INDICATION
     Dosage: UNK (THE PATIENT HAD TAKEN 6 SPOONFULS OF PEDITUS SYRUP ? 5 ML SPOONFUL CONTAINING 120 MG PARACETAMO
     Route: 048
  2. PHENYTOIN SODIUM. [Suspect]
     Active Substance: PHENYTOIN SODIUM
     Indication: SEIZURE
     Dosage: 20 MILLIGRAM/KILOGRAM (TWO INTERMITTENT INFUSIONS)
     Route: 042
  3. DIAZEPAM. [Suspect]
     Active Substance: DIAZEPAM
     Indication: SEIZURE
     Dosage: 0.25 MILLIGRAM/KILOGRAM (TWO INTERMITTENT INFUSIONS)
     Route: 042
  4. METHYLPHENIDATE HYDROCHLORIDE. [Suspect]
     Active Substance: METHYLPHENIDATE HYDROCHLORIDE
     Indication: PRODUCT USED FOR UNKNOWN INDICATION
     Dosage: 50 MILLIGRAM, SINGLE (10 MG ALTERED RELEASE CAPSULES (10 MG METHYLPHENIDATE HCL IN 1 CAPSULE); PATIE
     Route: 065

REACTIONS (7)
  - Toxicity to various agents [Unknown]
  - Drug ineffective [Unknown]
  - Accidental overdose [Unknown]
  - Altered state of consciousness [Recovered/Resolved]
  - Choreoathetosis [Recovered/Resolved]
  - Accidental exposure to product by child [Unknown]
  - Status epilepticus [Recovered/Resolved]
